FAERS Safety Report 21478611 (Version 1)
Quarter: 2022Q4

REPORT INFORMATION
  Report Type: Spontaneous
  Country: US (occurrence: US)
  Receive Date: 20221019
  Receipt Date: 20221019
  Transmission Date: 20230113
  Serious: No
  Sender: FDA-Public Use
  Company Number: US-SANOFI-01314461

PATIENT
  Sex: Male

DRUGS (3)
  1. TOUJEO [Suspect]
     Active Substance: INSULIN GLARGINE
     Indication: Diabetes mellitus
     Dosage: UNK
  2. INSULIN LISPRO [Concomitant]
     Active Substance: INSULIN LISPRO
  3. ADMELOG [Concomitant]
     Active Substance: INSULIN LISPRO

REACTIONS (2)
  - Skin odour abnormal [Not Recovered/Not Resolved]
  - Blood glucose abnormal [Unknown]
